FAERS Safety Report 5489580-5 (Version None)
Quarter: 2007Q4

REPORT INFORMATION
  Report Type: 
  Country: None (occurrence: None)
  Receive Date: 20071009
  Receipt Date: 20070629
  Transmission Date: 20080405
  Serious: Yes (Other)
  Sender: FDA-Public Use
  Company Number: PHEH2005US06940

PATIENT
  Age: 57 Year
  Sex: Female

DRUGS (2)
  1. COMBIPATCH [Suspect]
     Indication: HORMONE REPLACEMENT THERAPY
     Dosage: TRANSDERMAL
     Route: 062
     Dates: start: 20020101, end: 20030101
  2. PREMPRO [Suspect]
     Indication: HORMONE REPLACEMENT THERAPY
     Dates: start: 19970101, end: 20000101

REACTIONS (5)
  - BIOPSY [None]
  - BREAST CANCER [None]
  - CHEMOTHERAPY [None]
  - MAMMOGRAM ABNORMAL [None]
  - RADIOTHERAPY [None]
